FAERS Safety Report 7559609-9 (Version None)
Quarter: 2011Q2

REPORT INFORMATION
  Report Type: 
  Country: None (occurrence: None)
  Receive Date: 20110621
  Receipt Date: 20110608
  Transmission Date: 20111010
  Serious: Yes (Other)
  Sender: FDA-Public Use
  Company Number: US-ELI_LILLY_AND_COMPANY-US201106003431

PATIENT
  Sex: Female

DRUGS (15)
  1. LOVAZA [Concomitant]
  2. VITAMIN B6 [Concomitant]
     Dosage: 50 UG, QD
  3. METAMUCIL-2 [Concomitant]
  4. FORTEO [Suspect]
     Indication: OSTEOPOROSIS
     Dosage: 20 UG, QD
     Dates: start: 20110119
  5. VITAMIN B-12 [Concomitant]
     Dosage: 500 UG, BID
  6. MULTI-VITAMIN [Concomitant]
     Dosage: UNK, QD
  7. FOLIC ACID [Concomitant]
     Dosage: 800 UG, TID
  8. STOOL SOFTENER [Concomitant]
  9. PENTASA [Concomitant]
     Dosage: 250 UG, TID
  10. CITRACAL + D [Concomitant]
     Dosage: UNK, QD
  11. FISH OIL [Concomitant]
     Dosage: 1000 UG, BID
  12. LUCENTIS [Concomitant]
     Dosage: UNK, MONTHLY (1/M)
  13. REMERON [Concomitant]
     Dosage: 30 UG, EACH EVENING
  14. NORITATE [Concomitant]
     Dosage: UNK, EACH MORNING
  15. NORVASC [Concomitant]
     Dosage: 5 UG, EACH MORNING

REACTIONS (1)
  - BREAST CANCER [None]
